FAERS Safety Report 8010421-6 (Version None)
Quarter: 2011Q4

REPORT INFORMATION
  Report Type: 
  Country: None (occurrence: None)
  Receive Date: 20111228
  Receipt Date: 20111221
  Transmission Date: 20120403
  Serious: Yes (Hospitalization)
  Sender: FDA-Public Use
  Company Number: US-US-EMD SERONO, INC.-7103313

PATIENT
  Sex: Female

DRUGS (2)
  1. REBIF [Suspect]
     Indication: PRODUCT USED FOR UNKNOWN INDICATION
     Route: 058
     Dates: start: 20090617
  2. REBIF [Suspect]
     Route: 058

REACTIONS (3)
  - BOWEL MOVEMENT IRREGULARITY [None]
  - AMMONIA INCREASED [None]
  - SPINAL COLUMN INJURY [None]
